FAERS Safety Report 5154945-8 (Version None)
Quarter: 2006Q4

REPORT INFORMATION
  Report Type: 
  Country: None (occurrence: None)
  Receive Date: 20061121
  Receipt Date: 20061116
  Transmission Date: 20070319
  Serious: Yes (Death, Hospitalization)
  Sender: FDA-Public Use
  Company Number: PHBS2006BR17864

PATIENT
  Age: 94 Year
  Sex: Female

DRUGS (4)
  1. HALDOL [Concomitant]
     Dosage: 10 DRP, QHS
     Route: 048
  2. AMLODIPINE [Concomitant]
     Route: 065
  3. NEOZINE [Concomitant]
     Indication: PROMOTION OF PERIPHERAL CIRCULATION
     Dosage: UNK, QD
     Route: 065
  4. EXELON [Suspect]
     Indication: DEMENTIA ALZHEIMER'S TYPE
     Dosage: 1.5 MG, QD
     Route: 048
     Dates: start: 20060101

REACTIONS (3)
  - ASPIRATION BRONCHIAL [None]
  - DEMENTIA ALZHEIMER'S TYPE [None]
  - MULTI-ORGAN FAILURE [None]
